FAERS Safety Report 19358335 (Version 4)
Quarter: 2022Q1

REPORT INFORMATION
  Report Type: Report from Study
  Country: JP (occurrence: JP)
  Receive Date: 20210601
  Receipt Date: 20220317
  Transmission Date: 20220423
  Serious: Yes (Death, Other)
  Sender: FDA-Public Use
  Company Number: JP-CELLTRION INC.-2021JP007320

PATIENT

DRUGS (10)
  1. INVESTIGATIONAL BIOSIMILARS [Suspect]
     Active Substance: INVESTIGATIONAL BIOSIMILARS
     Indication: HER2 positive gastric cancer
     Dosage: 420 MG, QD (EVERY ADMINISTRATION)
     Route: 041
     Dates: start: 20200325, end: 20200325
  2. INVESTIGATIONAL BIOSIMILARS [Suspect]
     Active Substance: INVESTIGATIONAL BIOSIMILARS
     Dosage: 340 MG, QD (EVERY ADMINISTRATION)
     Route: 041
     Dates: start: 20200417, end: 20200417
  3. INVESTIGATIONAL BIOSIMILARS [Suspect]
     Active Substance: INVESTIGATIONAL BIOSIMILARS
     Dosage: 340 MG, QD (EVERY ADMINISTRATION)
     Route: 041
     Dates: start: 20200508, end: 20200508
  4. OXALIPLATIN [Suspect]
     Active Substance: OXALIPLATIN
     Indication: HER2 positive gastric cancer
     Dosage: 160 MG, QD
     Route: 041
     Dates: start: 20200325, end: 20200325
  5. OXALIPLATIN [Suspect]
     Active Substance: OXALIPLATIN
     Dosage: 160 MG, QD
     Route: 041
     Dates: start: 20200417, end: 20200417
  6. OXALIPLATIN [Suspect]
     Active Substance: OXALIPLATIN
     Dosage: 160 MG, QD
     Route: 041
     Dates: start: 20200508, end: 20200508
  7. CAPECITABINE [Suspect]
     Active Substance: CAPECITABINE
     Indication: HER2 positive gastric cancer
     Dosage: 3000 MG, QD
     Route: 048
     Dates: start: 20200325, end: 20200410
  8. CAPECITABINE [Suspect]
     Active Substance: CAPECITABINE
     Dosage: 3000 MG, QD
     Route: 048
     Dates: start: 20200417, end: 20200501
  9. CAPECITABINE [Suspect]
     Active Substance: CAPECITABINE
     Dosage: 3000 MG, QD
     Route: 048
     Dates: start: 20200508, end: 20200522
  10. DECADRON [Concomitant]
     Active Substance: DEXAMETHASONE
     Indication: Prophylaxis of nausea and vomiting
     Dosage: UNK
     Dates: start: 20200326, end: 20200511

REACTIONS (4)
  - HER2 positive gastric cancer [Fatal]
  - Tuberculosis [Recovered/Resolved]
  - Overdose [Unknown]
  - Off label use [Unknown]

NARRATIVE: CASE EVENT DATE: 20200525
